FAERS Safety Report 11394962 (Version 1)
Quarter: 2015Q3

REPORT INFORMATION
  Report Type: Spontaneous
  Country: US (occurrence: None)
  Receive Date: 20150817
  Receipt Date: 20150817
  Transmission Date: 20151125
  Serious: Yes (Hospitalization)
  Sender: FDA-Public Use
  Company Number: None

PATIENT
  Age: 30 Year
  Sex: Female
  Weight: 48.5 kg

DRUGS (2)
  1. ZONISAMIDE CAPSULE 100 MG UNKNOWN [Suspect]
     Active Substance: ZONISAMIDE
     Indication: SEIZURE
     Route: 048
  2. LACOSAMIDE (VIMPAT) [Concomitant]

REACTIONS (10)
  - Hypokalaemia [None]
  - Insomnia [None]
  - Feeling abnormal [None]
  - Agitation [None]
  - Mental status changes [None]
  - Hypotension [None]
  - Hallucination, auditory [None]
  - Hyponatraemia [None]
  - Screaming [None]
  - Confusional state [None]

NARRATIVE: CASE EVENT DATE: 20150725
